FAERS Safety Report 18939092 (Version 1)
Quarter: 2021Q1

REPORT INFORMATION
  Report Type: Spontaneous
  Country: AU (occurrence: AU)
  Receive Date: 20210224
  Receipt Date: 20210224
  Transmission Date: 20210420
  Serious: Yes (Hospitalization, Other)
  Sender: FDA-Public Use
  Company Number: AU-BIOGEN-2021BI00980476

PATIENT
  Age: 48 Year
  Sex: Male

DRUGS (4)
  1. MOBIC [Suspect]
     Active Substance: MELOXICAM
     Indication: PRODUCT USED FOR UNKNOWN INDICATION
     Route: 065
  2. TECFIDERA [Suspect]
     Active Substance: DIMETHYL FUMARATE
     Route: 048
     Dates: start: 20191220
  3. TECFIDERA [Suspect]
     Active Substance: DIMETHYL FUMARATE
     Route: 048
     Dates: start: 20191220, end: 20200407
  4. TECFIDERA [Suspect]
     Active Substance: DIMETHYL FUMARATE
     Indication: MULTIPLE SCLEROSIS
     Route: 048
     Dates: start: 20191206, end: 20191219

REACTIONS (13)
  - Eating disorder [Unknown]
  - Back pain [Unknown]
  - Loss of consciousness [Recovered/Resolved]
  - Vomiting [Unknown]
  - Liver function test increased [Unknown]
  - Intentional dose omission [Recovered/Resolved]
  - Prescribed underdose [Unknown]
  - Nausea [Recovered/Resolved]
  - Fall [Recovered/Resolved]
  - Ulcer haemorrhage [Unknown]
  - Chromaturia [Recovered/Resolved]
  - Head injury [Recovered/Resolved]
  - Multiple sclerosis [Unknown]

NARRATIVE: CASE EVENT DATE: 20200329
